FAERS Safety Report 7814223 (Version 21)
Quarter: 2013Q2

REPORT INFORMATION
  Report Type: Spontaneous
  Country: US (occurrence: US)
  Receive Date: 20110216
  Receipt Date: 20130607
  Transmission Date: 20140414
  Serious: Yes (Life-Threatening, Hospitalization, Other)
  Sender: FDA-Public Use
  Company Number: US-JNJFOC-20101002914

PATIENT
  Age: 41 Year
  Sex: Male

DRUGS (44)
  1. RISPERDAL CONSTA [Suspect]
     Indication: MAJOR DEPRESSION
     Route: 030
     Dates: start: 201005, end: 201010
  2. RISPERDAL CONSTA [Suspect]
     Indication: MAJOR DEPRESSION
     Route: 030
     Dates: start: 2009
  3. RISPERDAL CONSTA [Suspect]
     Indication: MAJOR DEPRESSION
     Dosage: EVERY 4 TO 6 WEEKS
     Route: 030
     Dates: start: 20100915, end: 2010
  4. RISPERDAL CONSTA [Suspect]
     Indication: MAJOR DEPRESSION
     Route: 030
     Dates: start: 201004, end: 201008
  5. RISPERDAL CONSTA [Suspect]
     Indication: MAJOR DEPRESSION
     Route: 030
     Dates: start: 20100728, end: 20101027
  6. RISPERDAL CONSTA [Suspect]
     Indication: MAJOR DEPRESSION
     Dosage: EVERY 4 TO 6 WEEKS
     Route: 030
     Dates: start: 2010, end: 2010
  7. RISPERDAL CONSTA [Suspect]
     Indication: MAJOR DEPRESSION
     Dosage: EVERY 4 TO 6 WEEKS
     Route: 030
     Dates: start: 2010, end: 2010
  8. RISPERDAL CONSTA [Suspect]
     Indication: MAJOR DEPRESSION
     Dosage: NDC 050468-306
     Route: 030
     Dates: start: 20100407, end: 20110202
  9. RISPERDAL CONSTA [Suspect]
     Indication: BIPOLAR DISORDER
     Route: 030
     Dates: start: 201004, end: 201008
  10. RISPERDAL CONSTA [Suspect]
     Indication: BIPOLAR DISORDER
     Dosage: NDC 050468-306
     Route: 030
     Dates: start: 20100407, end: 20110202
  11. RISPERDAL CONSTA [Suspect]
     Indication: BIPOLAR DISORDER
     Dosage: EVERY 4 TO 6 WEEKS
     Route: 030
     Dates: start: 20100915, end: 2010
  12. RISPERDAL CONSTA [Suspect]
     Indication: BIPOLAR DISORDER
     Dosage: EVERY 4 TO 6 WEEKS
     Route: 030
     Dates: start: 2010, end: 2010
  13. RISPERDAL CONSTA [Suspect]
     Indication: BIPOLAR DISORDER
     Route: 030
     Dates: start: 20100728, end: 20101027
  14. RISPERDAL CONSTA [Suspect]
     Indication: BIPOLAR DISORDER
     Dosage: EVERY 4 TO 6 WEEKS
     Route: 030
     Dates: start: 2010, end: 2010
  15. RISPERDAL CONSTA [Suspect]
     Indication: BIPOLAR DISORDER
     Route: 030
     Dates: start: 2009
  16. RISPERDAL CONSTA [Suspect]
     Indication: BIPOLAR DISORDER
     Route: 030
     Dates: start: 201005, end: 201010
  17. RISPERDAL CONSTA [Suspect]
     Indication: SCHIZOPHRENIA, PARANOID TYPE
     Route: 030
     Dates: start: 2009
  18. RISPERDAL CONSTA [Suspect]
     Indication: SCHIZOPHRENIA, PARANOID TYPE
     Dosage: EVERY 4 TO 6 WEEKS
     Route: 030
     Dates: start: 2010, end: 2010
  19. RISPERDAL CONSTA [Suspect]
     Indication: SCHIZOPHRENIA, PARANOID TYPE
     Dosage: EVERY 4 TO 6 WEEKS
     Route: 030
     Dates: start: 20100915, end: 2010
  20. RISPERDAL CONSTA [Suspect]
     Indication: SCHIZOPHRENIA, PARANOID TYPE
     Route: 030
     Dates: start: 20100728, end: 20101027
  21. RISPERDAL CONSTA [Suspect]
     Indication: SCHIZOPHRENIA, PARANOID TYPE
     Dosage: NDC 050468-306
     Route: 030
     Dates: start: 20100407, end: 20110202
  22. RISPERDAL CONSTA [Suspect]
     Indication: SCHIZOPHRENIA, PARANOID TYPE
     Route: 030
     Dates: start: 201004, end: 201008
  23. RISPERDAL CONSTA [Suspect]
     Indication: SCHIZOPHRENIA, PARANOID TYPE
     Route: 030
     Dates: start: 201005, end: 201010
  24. RISPERDAL CONSTA [Suspect]
     Indication: SCHIZOPHRENIA, PARANOID TYPE
     Dosage: EVERY 4 TO 6 WEEKS
     Route: 030
     Dates: start: 2010, end: 2010
  25. INVEGA [Suspect]
     Indication: SCHIZOPHRENIA, PARANOID TYPE
     Route: 048
     Dates: start: 20090406
  26. INVEGA [Suspect]
     Indication: SCHIZOPHRENIA, PARANOID TYPE
     Route: 048
     Dates: start: 20100105
  27. INVEGA [Suspect]
     Indication: SCHIZOPHRENIA, PARANOID TYPE
     Route: 048
     Dates: start: 20090817, end: 200911
  28. INVEGA [Suspect]
     Indication: SCHIZOPHRENIA, PARANOID TYPE
     Dosage: MORNING
     Route: 048
     Dates: start: 200805, end: 20090406
  29. RISPERDAL [Suspect]
     Indication: SCHIZOPHRENIA, PARANOID TYPE
     Route: 048
     Dates: start: 200805
  30. RISPERDAL [Suspect]
     Indication: SCHIZOPHRENIA, PARANOID TYPE
     Route: 048
  31. RISPERDAL [Suspect]
     Indication: SCHIZOPHRENIA, PARANOID TYPE
     Route: 048
     Dates: start: 20100707, end: 20110202
  32. ZYPREXA [Suspect]
     Indication: SCHIZOPHRENIA
     Route: 065
     Dates: start: 20100728
  33. ZYPREXA [Suspect]
     Indication: SCHIZOPHRENIA
     Route: 065
     Dates: start: 20060410, end: 20060503
  34. ZYPREXA [Suspect]
     Indication: SCHIZOPHRENIA
     Route: 065
     Dates: start: 20060202, end: 20060316
  35. ZYPREXA [Suspect]
     Indication: SCHIZOPHRENIA
     Route: 065
     Dates: start: 20051103, end: 20060202
  36. ZYPREXA [Suspect]
     Indication: SCHIZOPHRENIA
     Dosage: EVENING
     Route: 065
     Dates: start: 20050901, end: 20051103
  37. COGENTIN [Suspect]
     Indication: PRODUCT USED FOR UNKNOWN INDICATION
     Dosage: AS NEEDED
     Route: 048
     Dates: start: 20100105
  38. COGENTIN [Suspect]
     Indication: PRODUCT USED FOR UNKNOWN INDICATION
     Route: 048
     Dates: start: 20110721, end: 20111117
  39. COGENTIN [Suspect]
     Indication: PRODUCT USED FOR UNKNOWN INDICATION
     Dosage: AS NEEDED
     Route: 048
     Dates: start: 20091111
  40. ABILIFY [Suspect]
     Indication: PRODUCT USED FOR UNKNOWN INDICATION
     Route: 065
     Dates: start: 20080527
  41. ABILIFY [Suspect]
     Indication: PRODUCT USED FOR UNKNOWN INDICATION
     Route: 065
     Dates: start: 2005, end: 2005
  42. ABILIFY [Suspect]
     Indication: PRODUCT USED FOR UNKNOWN INDICATION
     Route: 065
     Dates: start: 20060316
  43. ABILIFY [Suspect]
     Indication: PRODUCT USED FOR UNKNOWN INDICATION
     Dosage: MORNING
     Route: 065
     Dates: start: 20051103
  44. ABILIFY [Suspect]
     Indication: PRODUCT USED FOR UNKNOWN INDICATION
     Dosage: MORNING
     Route: 065
     Dates: start: 20051011, end: 20060316

REACTIONS (35)
  - Extrapyramidal disorder [Unknown]
  - Hypertension [Not Recovered/Not Resolved]
  - Depression [Recovering/Resolving]
  - Muscle tightness [Not Recovered/Not Resolved]
  - Tardive dyskinesia [Not Recovered/Not Resolved]
  - Musculoskeletal disorder [Not Recovered/Not Resolved]
  - Muscle twitching [Not Recovered/Not Resolved]
  - Neck pain [Not Recovered/Not Resolved]
  - Movement disorder [Unknown]
  - Muscle spasms [Not Recovered/Not Resolved]
  - Dystonia [Not Recovered/Not Resolved]
  - Pain [Not Recovered/Not Resolved]
  - Suicide attempt [Unknown]
  - Psychotic disorder [Unknown]
  - Blood cholesterol increased [Unknown]
  - Treatment noncompliance [Unknown]
  - Malaise [Unknown]
  - Injury [Unknown]
  - Drug ineffective [Not Recovered/Not Resolved]
  - Torticollis [Not Recovered/Not Resolved]
  - Dysphagia [Not Recovered/Not Resolved]
  - Grimacing [Not Recovered/Not Resolved]
  - Weight decreased [Not Recovered/Not Resolved]
  - Dissociation [Not Recovered/Not Resolved]
  - Abnormal behaviour [Not Recovered/Not Resolved]
  - Inappropriate schedule of drug administration [Recovered/Resolved]
  - Adverse event [Unknown]
  - Back pain [Not Recovered/Not Resolved]
  - Gait disturbance [Not Recovered/Not Resolved]
  - Condition aggravated [Not Recovered/Not Resolved]
  - Disturbance in attention [Not Recovered/Not Resolved]
  - Dry mouth [Unknown]
  - Polyuria [Unknown]
  - Musculoskeletal stiffness [Unknown]
  - Hypoaesthesia [Unknown]
